FAERS Safety Report 18945823 (Version 1)
Quarter: 2021Q1

REPORT INFORMATION
  Report Type: Spontaneous
  Country: CO (occurrence: CO)
  Receive Date: 20210226
  Receipt Date: 20210226
  Transmission Date: 20210420
  Serious: Yes (Other)
  Sender: FDA-Public Use
  Company Number: CO-PFIZER INC-2021169279

PATIENT
  Age: 42 Year
  Sex: Female

DRUGS (1)
  1. REAMPLA [Suspect]
     Active Substance: PALBOCICLIB
     Indication: INVASIVE DUCTAL BREAST CARCINOMA
     Dosage: 125 MG
     Route: 048
     Dates: start: 20210108

REACTIONS (6)
  - Neoplasm progression [Unknown]
  - Depressed mood [Unknown]
  - Anxiety [Unknown]
  - Stress [Unknown]
  - Visual acuity reduced [Unknown]
  - Epilepsy [Unknown]

NARRATIVE: CASE EVENT DATE: 20210216
